FAERS Safety Report 6248479-7 (Version None)
Quarter: 2009Q2

REPORT INFORMATION
  Report Type: 
  Country: None (occurrence: None)
  Receive Date: 20090629
  Receipt Date: 20090617
  Transmission Date: 20091009
  Serious: Yes (Hospitalization)
  Sender: FDA-Public Use
  Company Number: US-ROCHE-639283

PATIENT
  Sex: Female
  Weight: 78.9 kg

DRUGS (6)
  1. CAPECITABINE [Suspect]
     Indication: COLORECTAL CANCER
     Route: 048
     Dates: start: 20090601, end: 20090606
  2. ACIPHEX [Concomitant]
  3. NORVASC [Concomitant]
  4. EVISTA [Concomitant]
  5. PLAVIX [Concomitant]
  6. ZOCOR [Concomitant]

REACTIONS (6)
  - DEHYDRATION [None]
  - DERMATITIS EXFOLIATIVE [None]
  - EATING DISORDER [None]
  - RASH GENERALISED [None]
  - STOMATITIS [None]
  - TONGUE EXFOLIATION [None]
